FAERS Safety Report 22772697 (Version 2)
Quarter: 2023Q4

REPORT INFORMATION
  Report Type: Spontaneous
  Country: GB (occurrence: GB)
  Receive Date: 20230801
  Receipt Date: 20231210
  Transmission Date: 20240110
  Serious: Yes (Other)
  Sender: FDA-Public Use
  Company Number: GB-SA-SAC20220906001563

PATIENT
  Age: 43 Year
  Sex: Female

DRUGS (6)
  1. TOPIRAMATE [Suspect]
     Active Substance: TOPIRAMATE
     Indication: Migraine
     Dosage: 1 DOSAGE FORM, ONCE A DAY
     Route: 065
     Dates: start: 20230617, end: 20230624
  2. TOPIRAMATE [Suspect]
     Active Substance: TOPIRAMATE
     Dosage: 2 DOSAGE FORM, ONCE A DAY
     Route: 065
     Dates: start: 20230625, end: 20230701
  3. TOPIRAMATE [Suspect]
     Active Substance: TOPIRAMATE
     Dosage: 3 DOSAGE FORM, ONCE A DAY (3 TABLETS A DAY)
     Route: 065
     Dates: start: 20230702
  4. ALEMTUZUMAB [Suspect]
     Active Substance: ALEMTUZUMAB
     Indication: Product used for unknown indication
     Dosage: UNK; ;
     Route: 065
     Dates: start: 201910, end: 2019
  5. ALEMTUZUMAB [Suspect]
     Active Substance: ALEMTUZUMAB
     Dosage: UNK
     Route: 065
     Dates: start: 202201
  6. ALEMTUZUMAB [Suspect]
     Active Substance: ALEMTUZUMAB
     Dosage: UNK; ;
     Route: 065
     Dates: start: 202201, end: 202201

REACTIONS (19)
  - Multiple sclerosis [Not Recovered/Not Resolved]
  - Abdominal pain [Not Recovered/Not Resolved]
  - Abdominal distension [Not Recovered/Not Resolved]
  - Crying [Unknown]
  - Emotional distress [Unknown]
  - Gait disturbance [Unknown]
  - Limb discomfort [Unknown]
  - Sensory disturbance [Unknown]
  - Migraine [Unknown]
  - Urinary incontinence [Unknown]
  - Lip disorder [Not Recovered/Not Resolved]
  - Depressed mood [Not Recovered/Not Resolved]
  - Taste disorder [Not Recovered/Not Resolved]
  - Pain in extremity [Not Recovered/Not Resolved]
  - Arthralgia [Not Recovered/Not Resolved]
  - Paraesthesia [Unknown]
  - Fatigue [Unknown]
  - Headache [Unknown]
  - Multiple sclerosis relapse [Not Recovered/Not Resolved]

NARRATIVE: CASE EVENT DATE: 20230101
